FAERS Safety Report 9274858 (Version 1)
Quarter: 2013Q2

REPORT INFORMATION
  Report Type: Spontaneous
  Country: US (occurrence: None)
  Receive Date: 20130501
  Receipt Date: 20130501
  Transmission Date: 20140414
  Serious: Yes (Hospitalization)
  Sender: FDA-Public Use
  Company Number: None

PATIENT
  Age: 67 Year
  Sex: Female
  Weight: 83 kg

DRUGS (8)
  1. CARBOPLATIN [Suspect]
     Dates: end: 20130416
  2. PACLITAXEL (TAXOL) [Suspect]
     Dates: end: 20130423
  3. AMBIEN [Concomitant]
  4. COLACE [Concomitant]
  5. COREG [Concomitant]
  6. EFFEXOR [Concomitant]
  7. MAGNESIUM [Concomitant]
  8. POTASSIUM [Concomitant]

REACTIONS (8)
  - Impaired healing [None]
  - Thrombocytopenia [None]
  - Wound secretion [None]
  - Ascites [None]
  - Soft tissue infection [None]
  - Haemoglobin decreased [None]
  - Skin irritation [None]
  - Blood pressure decreased [None]
